FAERS Safety Report 13209939 (Version 1)
Quarter: 2017Q1

REPORT INFORMATION
  Report Type: Spontaneous
  Country: BR (occurrence: BR)
  Receive Date: 20170210
  Receipt Date: 20170210
  Transmission Date: 20170428
  Serious: Yes (Other)
  Sender: FDA-Public Use
  Company Number: BR-JNJFOC-20170128378

PATIENT
  Sex: Female

DRUGS (1)
  1. TYLENOL 750 MG [Suspect]
     Active Substance: ACETAMINOPHEN
     Indication: PRODUCT USED FOR UNKNOWN INDICATION
     Route: 048
     Dates: start: 201610

REACTIONS (7)
  - Liver disorder [None]
  - Ill-defined disorder [None]
  - Gastric disorder [Unknown]
  - Toxicity to various agents [Unknown]
  - Hypersensitivity [Unknown]
  - Diarrhoea [Unknown]
  - Gastrointestinal disorder [Unknown]
